FAERS Safety Report 7937750-6 (Version None)
Quarter: 2011Q4

REPORT INFORMATION
  Report Type: 
  Country: None (occurrence: None)
  Receive Date: 20111123
  Receipt Date: 20111116
  Transmission Date: 20120403
  Serious: Yes (Death, Hospitalization)
  Sender: FDA-Public Use
  Company Number: JP-GENZYME-THYM-1001538

PATIENT
  Sex: Male
  Weight: 57 kg

DRUGS (69)
  1. THYMOGLOBULIN [Suspect]
     Indication: BONE MARROW CONDITIONING REGIMEN
     Dosage: 70 MG, QD
     Route: 042
     Dates: start: 20090611, end: 20090614
  2. LOXOPROFEN SODIUM [Concomitant]
     Indication: PROPHYLAXIS
     Dosage: UNK
     Route: 065
     Dates: start: 20090624, end: 20090702
  3. AMPHOTERICIN B [Concomitant]
     Indication: PRODUCT USED FOR UNKNOWN INDICATION
     Dosage: UNK
     Dates: start: 20091208, end: 20100104
  4. MICAFUNGIN SODIUM [Concomitant]
     Dosage: UNK
     Route: 065
     Dates: start: 20091202, end: 20091203
  5. DEXTROSE [Concomitant]
     Dosage: UNK
     Route: 065
     Dates: start: 20091211, end: 20100104
  6. GRANISETRON HCL [Concomitant]
     Indication: PRODUCT USED FOR UNKNOWN INDICATION
     Dosage: UNK
     Route: 065
     Dates: start: 20091207, end: 20091207
  7. CYTARABINE [Concomitant]
     Indication: PRODUCT USED FOR UNKNOWN INDICATION
     Dosage: UNK
     Route: 065
     Dates: start: 20091209, end: 20091211
  8. DOPAMINE HYDROCHLORIDE [Concomitant]
     Dosage: UNK
     Route: 065
     Dates: start: 20091213, end: 20091214
  9. DOPAMINE HYDROCHLORIDE [Concomitant]
     Dosage: UNK
     Route: 065
     Dates: start: 20091221, end: 20091221
  10. DOPAMINE HYDROCHLORIDE [Concomitant]
     Dosage: UNK
     Route: 065
     Dates: start: 20100104, end: 20100104
  11. CALCIUM GLUCONATE [Concomitant]
     Indication: PRODUCT USED FOR UNKNOWN INDICATION
     Dosage: UNK
     Route: 065
     Dates: start: 20091214, end: 20091216
  12. URSODIOL [Concomitant]
     Indication: PROPHYLAXIS
     Dosage: UNK
     Route: 065
     Dates: start: 20090610, end: 20090704
  13. LOXOPROFEN SODIUM [Concomitant]
     Indication: PREMEDICATION
     Dosage: UNK
     Route: 065
     Dates: start: 20090612, end: 20090618
  14. SULFAMETHOPRIM [Concomitant]
     Dosage: 2.5 DF, BID
     Route: 065
     Dates: start: 20091202, end: 20091205
  15. PENTAZOCINE LACTATE [Concomitant]
     Indication: PRODUCT USED FOR UNKNOWN INDICATION
     Dosage: UNK
     Route: 065
     Dates: start: 20091203, end: 20091203
  16. INITIATION MEDIUM [Concomitant]
     Dosage: UNK
     Route: 065
     Dates: start: 20091211, end: 20100104
  17. DOPAMINE HYDROCHLORIDE [Concomitant]
     Indication: PRODUCT USED FOR UNKNOWN INDICATION
     Dosage: UNK
     Route: 065
     Dates: start: 20091210, end: 20091210
  18. DOPAMINE HYDROCHLORIDE [Concomitant]
     Dosage: UNK
     Route: 065
     Dates: start: 20091228, end: 20091228
  19. VECURONIUM BROMIDE [Concomitant]
     Indication: PRODUCT USED FOR UNKNOWN INDICATION
     Dosage: UNK
     Route: 065
     Dates: start: 20091210, end: 20091210
  20. ACYCLOVIR [Concomitant]
     Indication: PROPHYLAXIS
     Dosage: UNK
     Route: 065
     Dates: start: 20090610, end: 20090704
  21. SULFAMETHOPRIM [Concomitant]
     Indication: PROPHYLAXIS
     Dosage: UNK
     Route: 065
     Dates: start: 20090729, end: 20091205
  22. MELPHALAN HYDROCHLORIDE [Concomitant]
     Indication: PRODUCT USED FOR UNKNOWN INDICATION
     Dosage: UNK
     Route: 065
     Dates: start: 20090610, end: 20090610
  23. INSULIN HUMAN [Concomitant]
     Indication: PRODUCT USED FOR UNKNOWN INDICATION
     Dosage: UNK
     Route: 065
     Dates: start: 20091203, end: 20091231
  24. ETOPOSIDE [Concomitant]
     Dosage: UNK
     Route: 065
     Dates: start: 20091209, end: 20091211
  25. LINEZOLID [Concomitant]
     Indication: PRODUCT USED FOR UNKNOWN INDICATION
     Dosage: UNK
     Route: 065
     Dates: start: 20091214, end: 20100104
  26. CALCIUM GLUCONATE [Concomitant]
     Dosage: UNK
     Route: 065
     Dates: start: 20091223, end: 20100104
  27. AMPHOTERICIN B [Concomitant]
     Indication: PROPHYLAXIS
     Dosage: UNK
     Route: 065
     Dates: start: 20090703, end: 20090709
  28. VORICONAZOLE [Concomitant]
     Indication: PRODUCT USED FOR UNKNOWN INDICATION
     Dosage: UNK
     Route: 065
     Dates: start: 20091202, end: 20091203
  29. ULINASTATIN [Concomitant]
     Indication: PRODUCT USED FOR UNKNOWN INDICATION
     Dosage: UNK
     Route: 065
     Dates: start: 20091203, end: 20091218
  30. NICARDIPINE HYDROCHLORIDE [Concomitant]
     Indication: PRODUCT USED FOR UNKNOWN INDICATION
     Dosage: UNK
     Route: 065
     Dates: start: 20091203, end: 20091214
  31. NICARDIPINE HYDROCHLORIDE [Concomitant]
     Dosage: UNK
     Route: 065
     Dates: start: 20091216, end: 20091218
  32. GRANISETRON HCL [Concomitant]
     Dosage: UNK
     Route: 065
     Dates: start: 20091209, end: 20091211
  33. DOPAMINE HYDROCHLORIDE [Concomitant]
     Dosage: UNK
     Route: 065
     Dates: start: 20091216, end: 20091217
  34. CIPROFLOXACIN HYDROCHLORIDE [Concomitant]
     Indication: PROPHYLAXIS
     Dosage: UNK
     Route: 065
     Dates: start: 20090610, end: 20090627
  35. ITRACONAZOLE [Concomitant]
     Dosage: 2 DF, QD
     Route: 065
     Dates: start: 20091202, end: 20091211
  36. METHYLPREDNISOLONE SODIUM SUCCINATE [Concomitant]
     Indication: PRODUCT USED FOR UNKNOWN INDICATION
     Dosage: UNK
     Route: 042
     Dates: start: 20090717, end: 20091002
  37. GABEXATE MESILATE [Concomitant]
     Dosage: UNK
     Route: 065
     Dates: start: 20091219, end: 20100104
  38. MIDAZOLAM [Concomitant]
     Indication: PRODUCT USED FOR UNKNOWN INDICATION
     Dosage: UNK
     Route: 065
     Dates: start: 20091205, end: 20100104
  39. THROMBOMODULIN ALFA [Concomitant]
     Indication: PRODUCT USED FOR UNKNOWN INDICATION
     Dosage: UNK
     Route: 065
     Dates: start: 20091214, end: 20091227
  40. ACYCLOVIR [Concomitant]
     Dosage: UNK
     Route: 065
     Dates: start: 20090716, end: 20090923
  41. FLUDARABINE PHOSPHATE [Concomitant]
     Indication: PRODUCT USED FOR UNKNOWN INDICATION
     Dosage: UNK
     Route: 065
     Dates: start: 20090610, end: 20090612
  42. METHYLPREDNISOLONE SODIUM SUCCINATE [Concomitant]
     Dosage: UNK
     Route: 065
     Dates: start: 20091212, end: 20091212
  43. FILGRASTIM [Concomitant]
     Indication: BONE MARROW FAILURE
     Dosage: UNK
     Route: 065
     Dates: start: 20090621, end: 20090713
  44. PLATELETS [Concomitant]
     Indication: PLATELET COUNT DECREASED
     Dosage: UNK
     Route: 065
     Dates: start: 20090611, end: 20100104
  45. RED BLOOD CELLS [Concomitant]
     Indication: RED BLOOD CELL COUNT DECREASED
     Route: 065
  46. NICARDIPINE HYDROCHLORIDE [Concomitant]
     Dosage: UNK
     Route: 065
     Dates: start: 20091220, end: 20100103
  47. PIPERACILLIN W [Concomitant]
     Indication: PRODUCT USED FOR UNKNOWN INDICATION
     Dosage: UNK
     Route: 065
     Dates: start: 20091206, end: 20091208
  48. ETOPOSIDE [Concomitant]
     Indication: PRODUCT USED FOR UNKNOWN INDICATION
     Dosage: UNK
     Route: 065
     Dates: start: 20091207, end: 20091207
  49. MAINTENANCE MEDIUM [Concomitant]
     Indication: PRODUCT USED FOR UNKNOWN INDICATION
     Dosage: UNK
     Route: 065
     Dates: start: 20091209, end: 20091211
  50. ACYCLOVIR [Concomitant]
     Dosage: 1 DF, TID
     Route: 065
     Dates: start: 20091202, end: 20091211
  51. METHYLPREDNISOLONE SODIUM SUCCINATE [Concomitant]
     Indication: PREMEDICATION
     Dosage: UNK
     Route: 042
     Dates: start: 20090611, end: 20090627
  52. MICAFUNGIN SODIUM [Concomitant]
     Indication: PROPHYLAXIS
     Dosage: UNK
     Route: 065
     Dates: start: 20090627, end: 20091203
  53. GRANISETRON HCL [Concomitant]
     Dosage: UNK
     Route: 065
     Dates: start: 20091213, end: 20091216
  54. CYTARABINE [Concomitant]
     Dosage: UNK
     Route: 065
     Dates: start: 20091213, end: 20091216
  55. DOPAMINE HYDROCHLORIDE [Concomitant]
     Dosage: UNK
     Route: 065
     Dates: start: 20091219, end: 20091219
  56. DOPAMINE HYDROCHLORIDE [Concomitant]
     Dosage: UNK
     Route: 065
     Dates: start: 20091225, end: 20091225
  57. DOPAMINE HYDROCHLORIDE [Concomitant]
     Dosage: UNK
     Route: 065
     Dates: end: 20091230
  58. FREEZE DRIED POLYETHYLENE GLYCOL TREATED HUMAN NORMAL IMMUNOGLOBULIN [Concomitant]
     Indication: PRODUCT USED FOR UNKNOWN INDICATION
     Dosage: UNK
     Route: 065
     Dates: start: 20091215, end: 20091217
  59. SIVELESTAT [Concomitant]
     Dosage: UNK
     Route: 065
     Dates: start: 20091225, end: 20091226
  60. ITRACONAZOLE [Concomitant]
     Indication: PROPHYLAXIS
     Dosage: UNK
     Route: 065
     Dates: start: 20090704, end: 20091211
  61. TACROLIMUS [Concomitant]
     Indication: PRODUCT USED FOR UNKNOWN INDICATION
     Dosage: UNK
     Route: 065
     Dates: start: 20090615, end: 20091128
  62. HEPARIN SODIUM [Concomitant]
     Indication: PRODUCT USED FOR UNKNOWN INDICATION
     Dosage: UNK
     Route: 065
     Dates: start: 20091202, end: 20100104
  63. INITIATION MEDIUM [Concomitant]
     Indication: PRODUCT USED FOR UNKNOWN INDICATION
     Dosage: UNK
     Route: 065
     Dates: start: 20091203, end: 20091208
  64. GABEXATE MESILATE [Concomitant]
     Indication: PRODUCT USED FOR UNKNOWN INDICATION
     Dosage: UNK
     Route: 065
     Dates: start: 20091203, end: 20091216
  65. SODIUM BICARBONATE [Concomitant]
     Indication: PRODUCT USED FOR UNKNOWN INDICATION
     Dosage: UNK
     Route: 065
     Dates: start: 20091203, end: 20100104
  66. DEXTROSE [Concomitant]
     Indication: PRODUCT USED FOR UNKNOWN INDICATION
     Dosage: UNK
     Route: 065
     Dates: start: 20091204, end: 20091207
  67. ETOPOSIDE [Concomitant]
     Dosage: UNK
     Dates: start: 20091213, end: 20091216
  68. D-MANNITOL [Concomitant]
     Indication: PRODUCT USED FOR UNKNOWN INDICATION
     Dosage: UNK
     Route: 065
     Dates: start: 20091207, end: 20091208
  69. SIVELESTAT [Concomitant]
     Indication: PRODUCT USED FOR UNKNOWN INDICATION
     Dosage: UNK
     Route: 065
     Dates: start: 20091216, end: 20091218

REACTIONS (5)
  - BRONCHOPULMONARY ASPERGILLOSIS [None]
  - EPSTEIN-BARR VIRUS ASSOCIATED LYMPHOPROLIFERATIVE DISORDER [None]
  - HISTIOCYTOSIS HAEMATOPHAGIC [None]
  - FUNGAL INFECTION [None]
  - MULTI-ORGAN FAILURE [None]
